FAERS Safety Report 13041068 (Version 1)
Quarter: 2016Q4

REPORT INFORMATION
  Report Type: Spontaneous
  Country: US (occurrence: US)
  Receive Date: 20161219
  Receipt Date: 20161219
  Transmission Date: 20170207
  Serious: No
  Sender: FDA-Public Use
  Company Number: US-PFIZER INC-2016571280

PATIENT
  Age: 76 Year
  Sex: Female

DRUGS (1)
  1. EFFEXOR [Suspect]
     Active Substance: VENLAFAXINE HYDROCHLORIDE
     Dosage: UNK

REACTIONS (5)
  - Drug hypersensitivity [Unknown]
  - Insomnia [Unknown]
  - Nervousness [Unknown]
  - Chills [Unknown]
  - Cold sweat [Unknown]
